FAERS Safety Report 6207439-2 (Version None)
Quarter: 2009Q2

REPORT INFORMATION
  Report Type: 
  Country: None (occurrence: None)
  Receive Date: 20090527
  Receipt Date: 20090527
  Transmission Date: 20091009
  Serious: Yes (Other)
  Sender: FDA-Public Use
  Company Number: None

PATIENT
  Age: 67 Year
  Sex: Male
  Weight: 90 kg

DRUGS (2)
  1. CYMBALTA [Suspect]
     Indication: DEPRESSION
     Dosage: 30 MG DAY
     Dates: start: 20090208, end: 20090519
  2. CYMBALTA [Suspect]
     Indication: SUICIDAL IDEATION
     Dosage: 30 MG DAY
     Dates: start: 20090208, end: 20090519

REACTIONS (8)
  - EJACULATION DISORDER [None]
  - EJACULATION FAILURE [None]
  - FACE OEDEMA [None]
  - FATIGUE [None]
  - INSOMNIA [None]
  - IRRITABILITY [None]
  - LOSS OF LIBIDO [None]
  - PRURITUS [None]
